FAERS Safety Report 9698059 (Version 3)
Quarter: 2013Q4

REPORT INFORMATION
  Report Type: Spontaneous
  Country: FR (occurrence: None)
  Receive Date: 20131030
  Receipt Date: 20131118
  Transmission Date: 20140711
  Serious: Yes (Hospitalization)
  Sender: FDA-Public Use
  Company Number: 2013038602

PATIENT
  Age: 17 Year
  Sex: Female

DRUGS (5)
  1. PRIVIGEN [Suspect]
     Indication: IMMUNE THROMBOCYTOPENIC PURPURA
     Dosage: (NOT OTHERWISE SPECIFIED)
     Route: 042
     Dates: start: 20131016, end: 20131016
  2. GAVISCON (GASTRON) [Concomitant]
  3. VOGALENE (METOPIMAZINE) [Concomitant]
  4. MOPRAL (OMEPRAZOLE) [Concomitant]
  5. CORTANCYL (PREDNISONE) [Concomitant]

REACTIONS (7)
  - Headache [None]
  - Pyrexia [None]
  - Nausea [None]
  - Photophobia [None]
  - Leukopenia [None]
  - Lymphopenia [None]
  - Meningitis [None]
